FAERS Safety Report 24530987 (Version 1)
Quarter: 2024Q4

REPORT INFORMATION
  Report Type: Spontaneous
  Country: RU (occurrence: RU)
  Receive Date: 20241021
  Receipt Date: 20241021
  Transmission Date: 20250115
  Serious: Yes (Life-Threatening, Hospitalization, Other)
  Sender: ASTELLAS
  Company Number: RU-ASTELLAS-2024-AER-012723

PATIENT
  Age: 10 Year
  Sex: Male

DRUGS (4)
  1. TACROLIMUS [Suspect]
     Active Substance: TACROLIMUS
     Indication: Liver transplant
     Route: 065
     Dates: start: 202008, end: 202107
  2. TACROLIMUS [Suspect]
     Active Substance: TACROLIMUS
     Dosage: HAVE BEEN REDUCED
     Route: 065
     Dates: start: 202107, end: 2021
  3. METHYLPREDNISOLONE [Concomitant]
     Active Substance: METHYLPREDNISOLONE
     Indication: Liver transplant
     Route: 065
     Dates: start: 202008, end: 202107
  4. METHYLPREDNISOLONE [Concomitant]
     Active Substance: METHYLPREDNISOLONE
     Dosage: HAVE BEEN REDUCED
     Route: 065
     Dates: start: 202107, end: 20220727

REACTIONS (3)
  - COVID-19 pneumonia [Unknown]
  - Anaemic hypoxia [Unknown]
  - Respiratory failure [Unknown]

NARRATIVE: CASE EVENT DATE: 20210723
